FAERS Safety Report 9527114 (Version 4)
Quarter: 2014Q3

REPORT INFORMATION
  Report Type: Spontaneous
  Country: US (occurrence: US)
  Receive Date: 20130916
  Receipt Date: 20140813
  Transmission Date: 20150326
  Serious: Yes (Death, Hospitalization, Other)
  Sender: FDA-Public Use
  Company Number: US-009507513-1309USA006846

PATIENT
  Sex: Male
  Weight: 80.73 kg

DRUGS (1)
  1. JANUVIA [Suspect]
     Active Substance: SITAGLIPTIN PHOSPHATE
     Indication: TYPE 2 DIABETES MELLITUS
     Dosage: 100 MG, QD
     Route: 048
     Dates: start: 200809, end: 200811

REACTIONS (27)
  - Pulmonary embolism [Unknown]
  - Hypoxia [Unknown]
  - Cholecystectomy [Unknown]
  - Cholelithiasis [Unknown]
  - Large intestine polyp [Unknown]
  - Pneumonia [Unknown]
  - Gastrooesophageal reflux disease [Unknown]
  - Proteinuria [Unknown]
  - Blood glucose decreased [Unknown]
  - Bronchiectasis [Unknown]
  - Abdominal discomfort [Unknown]
  - Respiratory distress [Unknown]
  - Diabetes mellitus inadequate control [Unknown]
  - Ketosis [Unknown]
  - Hyperlipidaemia [Unknown]
  - Chronic gastritis [Not Recovered/Not Resolved]
  - Emphysema [Unknown]
  - Hypertension [Unknown]
  - Decreased appetite [Unknown]
  - Thrombocytopenia [Unknown]
  - Drug ineffective [Unknown]
  - Pancreatic carcinoma metastatic [Fatal]
  - Lactose intolerance [Unknown]
  - Petechiae [Unknown]
  - Candida infection [Unknown]
  - Electrolyte imbalance [Unknown]
  - Helicobacter infection [Unknown]

NARRATIVE: CASE EVENT DATE: 200809
